FAERS Safety Report 10095384 (Version 2)
Quarter: 2014Q2

REPORT INFORMATION
  Report Type: Spontaneous
  Country: US (occurrence: US)
  Receive Date: 20140422
  Receipt Date: 20140422
  Transmission Date: 20141212
  Serious: No
  Sender: FDA-Public Use
  Company Number: US-GILEAD-2013-0075492

PATIENT
  Sex: Female

DRUGS (4)
  1. LETAIRIS [Suspect]
     Indication: PULMONARY HYPERTENSION
     Dosage: 10 MG, QD
     Dates: start: 20110426
  2. LETAIRIS [Suspect]
     Indication: MIXED CONNECTIVE TISSUE DISEASE
  3. REMODULIN [Concomitant]
     Route: 058
  4. REVATIO [Concomitant]

REACTIONS (3)
  - Diarrhoea [Unknown]
  - Pain in jaw [Unknown]
  - Headache [Unknown]
